FAERS Safety Report 5451616-5 (Version None)
Quarter: 2007Q3

REPORT INFORMATION
  Report Type: 
  Country: None (occurrence: None)
  Receive Date: 20070913
  Receipt Date: 20070904
  Transmission Date: 20080115
  Serious: No
  Sender: FDA-Public Use
  Company Number: US-BOEHRINGER INGELHEIM PHARMACEUTICALS, INC.-2007-BP-20539BP

PATIENT
  Sex: Female

DRUGS (3)
  1. SPIRIVA [Suspect]
  2. FORADIL [Concomitant]
  3. QVAR 40 [Concomitant]

REACTIONS (1)
  - WRONG DRUG ADMINISTERED [None]
